FAERS Safety Report 7562770-3 (Version None)
Quarter: 2011Q2

REPORT INFORMATION
  Report Type: 
  Country: None (occurrence: None)
  Receive Date: 20110622
  Receipt Date: 20110615
  Transmission Date: 20111010
  Serious: Yes (Other)
  Sender: FDA-Public Use
  Company Number: GB-AMGEN-GBRSP2011031258

PATIENT
  Age: 45 Year
  Sex: Male
  Weight: 82.6 kg

DRUGS (3)
  1. ETANERCEPT [Suspect]
     Indication: PSORIASIS
     Dosage: 50 MG, ONCE PER WEEK
     Route: 058
     Dates: start: 20100730, end: 20110531
  2. OMEPRAZOLE [Concomitant]
     Dosage: 120 MG, UNK
     Route: 048
     Dates: start: 20090901
  3. VENTOLIN [Concomitant]
     Dosage: UNK
     Route: 055
     Dates: start: 20090901

REACTIONS (1)
  - COORDINATION ABNORMAL [None]
